FAERS Safety Report 8286301-8 (Version None)
Quarter: 2012Q1

REPORT INFORMATION
  Report Type: 
  Country: None (occurrence: None)
  Receive Date: 20120314
  Receipt Date: 20100929
  Transmission Date: 20120608
  Serious: No
  Sender: FDA-Public Use
  Company Number: PHHY2010US65122

PATIENT
  Sex: Female

DRUGS (1)
  1. FANAPT [Suspect]
     Indication: SCHIZOPHRENIA
     Dosage: 0.5 DF, QD, ORAL
     Route: 048
     Dates: start: 20100804

REACTIONS (2)
  - HYPERHIDROSIS [None]
  - PALPITATIONS [None]
